FAERS Safety Report 5152973-X (Version None)
Quarter: 2006Q4

REPORT INFORMATION
  Report Type: 
  Country: None (occurrence: None)
  Receive Date: 20061114
  Receipt Date: 20061114
  Transmission Date: 20070319
  Serious: Yes (Other)
  Sender: FDA-Public Use
  Company Number: None

PATIENT
  Age: 50 Year
  Sex: Female
  Weight: 90.7194 kg

DRUGS (3)
  1. GABAPENTIN [Suspect]
     Indication: SPINAL OSTEOARTHRITIS
     Dosage: 1 CAPSULE BY MOUTH 3 TIMES A DAY
     Dates: start: 20051114, end: 20061101
  2. NABUMETONE [Suspect]
     Indication: ANALGESIC THERAPY
     Dosage: 1TABLET BY MOUTH TWICE A DAY OTHER
     Dates: start: 20051114, end: 20061101
  3. NABUMETONE [Suspect]
     Indication: ARTHRITIS
     Dosage: 1TABLET BY MOUTH TWICE A DAY OTHER
     Dates: start: 20051114, end: 20061101

REACTIONS (7)
  - BACK PAIN [None]
  - DIZZINESS [None]
  - HEADACHE [None]
  - MUSCULOSKELETAL STIFFNESS [None]
  - NAUSEA [None]
  - NECK PAIN [None]
  - NERVOUSNESS [None]
